FAERS Safety Report 8581431-5 (Version None)
Quarter: 2012Q3

REPORT INFORMATION
  Report Type: 
  Country: None (occurrence: None)
  Receive Date: 20120809
  Receipt Date: 20120726
  Transmission Date: 20120928
  Serious: Yes (Hospitalization)
  Sender: FDA-Public Use
  Company Number: IT-MYLANLABS-2012S1015458

PATIENT
  Age: 51 Year
  Sex: Male

DRUGS (2)
  1. VENLAFAXINE [Suspect]
     Indication: ANTIDEPRESSANT THERAPY
     Route: 048
     Dates: start: 20120628, end: 20120628
  2. CARBAMAZEPINE [Suspect]
     Indication: EPILEPSY
     Route: 048
     Dates: start: 20120628, end: 20120628

REACTIONS (1)
  - COMA [None]
